FAERS Safety Report 17530286 (Version 2)
Quarter: 2021Q4

REPORT INFORMATION
  Report Type: Spontaneous
  Country: CH (occurrence: None)
  Receive Date: 20200312
  Receipt Date: 20211116
  Transmission Date: 20220303
  Serious: Yes (Hospitalization, Other)
  Sender: FDA-Public Use
  Company Number: 2020SE33384

PATIENT
  Age: 17 Year
  Sex: Female

DRUGS (6)
  1. SEROQUEL [Suspect]
     Active Substance: QUETIAPINE FUMARATE
     Dosage: 50.0MG UNKNOWN
     Route: 048
     Dates: start: 20200117, end: 202001
  2. SEROQUEL [Suspect]
     Active Substance: QUETIAPINE FUMARATE
     Dosage: 150.0MG UNKNOWN
     Route: 048
     Dates: start: 202001, end: 20200220
  3. SEROQUEL [Suspect]
     Active Substance: QUETIAPINE FUMARATE
     Dosage: 50.0MG UNKNOWN
     Route: 048
     Dates: start: 20200219, end: 20200221
  4. SEROQUEL [Suspect]
     Active Substance: QUETIAPINE FUMARATE
     Dosage: 150.0MG UNKNOWN
     Route: 048
     Dates: start: 20200221
  5. ABILIFY [Interacting]
     Active Substance: ARIPIPRAZOLE
     Route: 065
     Dates: start: 2016, end: 20200116
  6. FLUOXETINE HYDROCHLORIDE [Interacting]
     Active Substance: FLUOXETINE HYDROCHLORIDE
     Dosage: 40.0MG UNKNOWN
     Route: 048

REACTIONS (3)
  - Drug interaction [Recovered/Resolved]
  - Dyskinesia [Recovering/Resolving]
  - Withdrawal syndrome [Recovered/Resolved]

NARRATIVE: CASE EVENT DATE: 20160101
